FAERS Safety Report 7235831-6 (Version None)
Quarter: 2011Q1

REPORT INFORMATION
  Report Type: 
  Country: None (occurrence: None)
  Receive Date: 20110111
  Receipt Date: 20110103
  Transmission Date: 20110831
  Serious: Yes (Other)
  Sender: FDA-Public Use
  Company Number: 2011MA000042

PATIENT
  Age: 59 Year
  Sex: Male

DRUGS (5)
  1. AMLODIPINE BESYLATE [Suspect]
     Dates: start: 20100101
  2. AMLODIPINE [Concomitant]
  3. RAMIPRIL [Concomitant]
  4. TAMSULOSIN HCL [Concomitant]
  5. SIMVASTATIN [Concomitant]

REACTIONS (2)
  - ABDOMINAL DISTENSION [None]
  - DIARRHOEA [None]
